FAERS Safety Report 5194364-1 (Version None)
Quarter: 2006Q4

REPORT INFORMATION
  Report Type: 
  Country: None (occurrence: None)
  Receive Date: 20061228
  Receipt Date: 20061206
  Transmission Date: 20070319
  Serious: Yes (Other)
  Sender: FDA-Public Use
  Company Number: FR-PFIZER INC-2006152130

PATIENT
  Age: 60 Year
  Sex: Female

DRUGS (3)
  1. SOMAVERT [Suspect]
     Indication: ACROMEGALY
     Dates: start: 20060101, end: 20060101
  2. ORAL ANTIDIABETICS [Suspect]
     Indication: DIABETES MELLITUS NON-INSULIN-DEPENDENT
  3. LANREOTIDE ACETATE [Concomitant]
     Indication: ACROMEGALY

REACTIONS (1)
  - RENAL FAILURE ACUTE [None]
